FAERS Safety Report 7319435-2 (Version None)
Quarter: 2011Q1

REPORT INFORMATION
  Report Type: 
  Country: None (occurrence: None)
  Receive Date: 20110228
  Receipt Date: 20100324
  Transmission Date: 20110831
  Serious: No
  Sender: FDA-Public Use
  Company Number: A0851811A

PATIENT
  Age: 31 Year
  Sex: Female

DRUGS (3)
  1. LAMICTAL [Suspect]
     Indication: BIPOLAR DISORDER
     Route: 048
     Dates: start: 20070101, end: 20090101
  2. NO CONCURRENT MEDICATION [Concomitant]
  3. LAMOTRIGINE [Suspect]
     Indication: BIPOLAR DISORDER
     Dosage: 25MG PER DAY
     Route: 048
     Dates: start: 20100101, end: 20100101

REACTIONS (13)
  - RASH [None]
  - ACNE [None]
  - MEMORY IMPAIRMENT [None]
  - FEELING ABNORMAL [None]
  - DIZZINESS [None]
  - SKIN EXFOLIATION [None]
  - DERMATITIS [None]
  - FEELING JITTERY [None]
  - HEAD DISCOMFORT [None]
  - HEADACHE [None]
  - DRY SKIN [None]
  - DISTURBANCE IN ATTENTION [None]
  - FUNGAL INFECTION [None]
